FAERS Safety Report 8828241 (Version 1)
Quarter: 2012Q4

REPORT INFORMATION
  Report Type: 
  Country: ES (occurrence: ES)
  Receive Date: 20121005
  Receipt Date: 20121005
  Transmission Date: 20130627
  Serious: Yes (Hospitalization)
  Sender: FDA-Public Use
  Company Number: ES-BAYER-2012-103301

PATIENT
  Age: 36 Year
  Sex: Male

DRUGS (1)
  1. PROFLOX [Suspect]
     Indication: SINUSITIS
     Dosage: Daily dose 400 mg
     Route: 048
     Dates: start: 20120730, end: 20120804

REACTIONS (1)
  - Rhabdomyolysis [Recovered/Resolved]
